FAERS Safety Report 17668964 (Version 1)
Quarter: 2020Q2

REPORT INFORMATION
  Report Type: Spontaneous
  Country: US (occurrence: US)
  Receive Date: 20200415
  Receipt Date: 20200415
  Transmission Date: 20200713
  Serious: No
  Sender: FDA-Public Use
  Company Number: US-ASTRAZENECA-2020SE49048

PATIENT
  Sex: Female
  Weight: 54.4 kg

DRUGS (2)
  1. BYDUREON [Suspect]
     Active Substance: EXENATIDE
     Indication: TYPE 2 DIABETES MELLITUS
     Route: 058
  2. BYDUREON [Suspect]
     Active Substance: EXENATIDE
     Indication: TYPE 2 DIABETES MELLITUS
     Route: 058

REACTIONS (8)
  - Injection site pain [Unknown]
  - Injection site haemorrhage [Unknown]
  - Insurance issue [Unknown]
  - Feeling abnormal [Unknown]
  - Glycosylated haemoglobin increased [Unknown]
  - Injection site mass [Unknown]
  - Nausea [Unknown]
  - Vomiting [Unknown]
